FAERS Safety Report 4720822-7 (Version None)
Quarter: 2005Q3

REPORT INFORMATION
  Report Type: 
  Country: None (occurrence: None)
  Receive Date: 20050720
  Receipt Date: 20050711
  Transmission Date: 20060218
  Serious: Yes (Hospitalization)
  Sender: FDA-Public Use
  Company Number: GXKR2005GB01325

PATIENT
  Age: 70 Year
  Sex: Female

DRUGS (10)
  1. FUROSEMIDE [Suspect]
     Dosage: ORAL
     Route: 048
  2. SPIRONOLACTONE [Suspect]
     Dosage: ORAL
     Route: 048
  3. PERINDOPRIL(PERINDOPRIL) [Suspect]
     Dosage: ORAL
     Route: 048
  4. METFORMIN HCL [Concomitant]
  5. GLICLAZIDE (GLICLAZIDE) [Concomitant]
  6. LANSOPRAZOLE [Concomitant]
  7. PROPRANOLOL [Concomitant]
  8. LOFEPRAMINE (LOFEPRAMINE) [Concomitant]
  9. ALLOPURINOL [Concomitant]
  10. TAMOXIFEN CITRATE [Concomitant]

REACTIONS (4)
  - BLOOD CREATININE INCREASED [None]
  - BLOOD UREA INCREASED [None]
  - DRUG INTERACTION [None]
  - RENAL FAILURE ACUTE [None]
